FAERS Safety Report 6118328-6 (Version None)
Quarter: 2009Q1

REPORT INFORMATION
  Report Type: 
  Country: None (occurrence: None)
  Receive Date: 20090314
  Receipt Date: 20090216
  Transmission Date: 20090719
  Serious: No
  Sender: FDA-Public Use
  Company Number: US-ABBOTT-09P-163-0557527-00

PATIENT
  Sex: Male
  Weight: 131.66 kg

DRUGS (8)
  1. HUMIRA [Suspect]
     Indication: PSORIASIS
     Dates: start: 20080801
  2. ALTACE [Concomitant]
     Indication: CARDIAC DISORDER
  3. TOPROL-XL [Concomitant]
     Indication: BLOOD PRESSURE
  4. ADVAIR HFA [Concomitant]
     Indication: RESPIRATORY DISORDER
     Dosage: 500/50
  5. AMRIX [Concomitant]
     Indication: MUSCLE SPASMS
  6. PERCOCET [Concomitant]
     Indication: DRUG USE FOR UNKNOWN INDICATION
     Dosage: 7.5/325
  7. ASPIRIN [Concomitant]
     Indication: DRUG USE FOR UNKNOWN INDICATION
  8. OINTMENT [Concomitant]
     Indication: DRUG USE FOR UNKNOWN INDICATION

REACTIONS (1)
  - INJECTION SITE PAIN [None]
